FAERS Safety Report 7796014-4 (Version None)
Quarter: 2011Q4

REPORT INFORMATION
  Report Type: 
  Country: None (occurrence: None)
  Receive Date: 20111004
  Receipt Date: 20110928
  Transmission Date: 20120403
  Serious: Yes (Other)
  Sender: FDA-Public Use
  Company Number: BR-PFIZER INC-2011196602

PATIENT
  Sex: Female

DRUGS (2)
  1. XALATAN [Suspect]
     Dosage: UNK
     Route: 047
  2. ULTRACET [Concomitant]
     Dosage: UNK

REACTIONS (3)
  - MEMORY IMPAIRMENT [None]
  - OEDEMA PERIPHERAL [None]
  - FEELING ABNORMAL [None]
